FAERS Safety Report 6175686-4 (Version None)
Quarter: 2009Q2

REPORT INFORMATION
  Report Type: 
  Country: None (occurrence: None)
  Receive Date: 20090427
  Receipt Date: 20090112
  Transmission Date: 20091009
  Serious: Yes (Other)
  Sender: FDA-Public Use
  Company Number: TEST0020900233

PATIENT
  Age: 70 Year
  Sex: Male
  Weight: 99.5 kg

DRUGS (9)
  1. ANDROGEL [Suspect]
     Indication: DRUG USE FOR UNKNOWN INDICATION
     Dosage: 7.5 MILLIGRAM(S) DAILY OTHER DAILY DOSES 7.5 MILLIGRAM(S), FREQUENCY: TWICE A DAY,  TRANSADERMAL
     Route: 062
     Dates: start: 20080411, end: 20080613
  2. LISINOPRIL [Concomitant]
  3. ATENOLOL [Concomitant]
  4. SIMVASTATIN [Concomitant]
  5. HYDROCLIROTHIAZIDE (HYDROCHLOROTHIAZIDE) [Concomitant]
  6. GEMFIBROZIL [Concomitant]
  7. ASPIRIN [Concomitant]
  8. FISH OIL (FISH OIL) [Concomitant]
  9. GLUCOSAMINE (GLUCOSAMINE) [Concomitant]

REACTIONS (1)
  - PROSTATE CANCER [None]
